FAERS Safety Report 4620009-2 (Version None)
Quarter: 2005Q1

REPORT INFORMATION
  Report Type: 
  Country: None (occurrence: None)
  Receive Date: 20050328
  Receipt Date: 20050316
  Transmission Date: 20050727
  Serious: Yes (Hospitalization)
  Sender: FDA-Public Use
  Company Number: FR-BRISTOL-MYERS SQUIBB COMPANY-12903209

PATIENT
  Age: 41 Year
  Sex: Male

DRUGS (6)
  1. VIDEX EC [Suspect]
     Indication: HIV INFECTION
     Route: 048
     Dates: end: 20040429
  2. KALETRA [Suspect]
     Indication: HIV INFECTION
     Dates: end: 20040429
  3. VIREAD [Suspect]
     Indication: HIV INFECTION
     Dates: end: 20040429
  4. DEPAKENE [Suspect]
     Indication: CEREBRAL TOXOPLASMOSIS
     Dates: start: 20030101, end: 20040429
  5. ADIAZINE [Concomitant]
     Indication: CEREBRAL TOXOPLASMOSIS
     Dates: start: 20030101
  6. MALOCIDE [Concomitant]
     Indication: CEREBRAL TOXOPLASMOSIS
     Dates: start: 20030101

REACTIONS (8)
  - ASCITES [None]
  - DYSPHAGIA [None]
  - GENERAL PHYSICAL HEALTH DETERIORATION [None]
  - JAUNDICE [None]
  - PANCREATITIS ACUTE [None]
  - RENAL FAILURE ACUTE [None]
  - TACHYPNOEA [None]
  - WEIGHT DECREASED [None]
